FAERS Safety Report 16931984 (Version 2)
Quarter: 2019Q4

REPORT INFORMATION
  Report Type: Spontaneous
  Country: IT (occurrence: IT)
  Receive Date: 20191017
  Receipt Date: 20191121
  Transmission Date: 20200122
  Serious: Yes (Other)
  Sender: FDA-Public Use
  Company Number: IT-ROCHE-2430285

PATIENT
  Age: 38 Year
  Sex: Female

DRUGS (2)
  1. OCREVUS [Suspect]
     Active Substance: OCRELIZUMAB
     Indication: MULTIPLE SCLEROSIS
     Route: 042
     Dates: start: 20190227
  2. OCREVUS [Suspect]
     Active Substance: OCRELIZUMAB
     Route: 042
     Dates: start: 20190320

REACTIONS (3)
  - Neutropenia [Recovered/Resolved]
  - Leukopenia [Unknown]
  - Lymphopenia [Recovered/Resolved]

NARRATIVE: CASE EVENT DATE: 20190918
